FAERS Safety Report 13006828 (Version 2)
Quarter: 2017Q1

REPORT INFORMATION
  Report Type: Spontaneous
  Country: DE (occurrence: DE)
  Receive Date: 20161207
  Receipt Date: 20170215
  Transmission Date: 20170428
  Serious: Yes (Other)
  Sender: FDA-Public Use
  Company Number: DE-TEVA-716757GER

PATIENT
  Age: 17 Year
  Sex: Female
  Weight: 76 kg

DRUGS (5)
  1. OPIPRAMOL HEXAL 50 MG TABLETTEN [Concomitant]
     Indication: DEPRESSION
     Dosage: 100 MILLIGRAM DAILY;
     Route: 048
     Dates: start: 20150421, end: 20160203
  2. IBEROGAST FLUESSIGKEIT BAYER VITAL GMBH [Concomitant]
     Indication: FUNCTIONAL GASTROINTESTINAL DISORDER
     Dosage: 60 GTT DAILY;
     Route: 048
     Dates: start: 20151226, end: 20160419
  3. DIPIPERON EUMEDICA  40 MG TABLETTEN [Concomitant]
     Indication: PSYCHOMOTOR HYPERACTIVITY
     Dosage: 40 MILLIGRAM DAILY;
     Route: 048
     Dates: start: 20151226, end: 20160419
  4. NOVAMINSULFON-RATIOPHARM 500MG TABLETTEN [Concomitant]
     Indication: PAIN
     Dosage: 1000 MILLIGRAM DAILY;
     Route: 048
     Dates: start: 20160113, end: 20160212
  5. ACICLOVIR-RATIOPHARM LIPPENHERPESCREME 50 MG/G CREME [Suspect]
     Active Substance: ACYCLOVIR
     Indication: ORAL HERPES
     Route: 003
     Dates: start: 20160125, end: 20160125

REACTIONS (1)
  - Anaphylactic shock [Recovered/Resolved]

NARRATIVE: CASE EVENT DATE: 20160125
